FAERS Safety Report 4889599-9 (Version None)
Quarter: 2006Q1

REPORT INFORMATION
  Report Type: 
  Country: None (occurrence: None)
  Receive Date: 20060120
  Receipt Date: 20060120
  Transmission Date: 20060701
  Serious: Yes (Hospitalization, Other)
  Sender: FDA-Public Use
  Company Number: None

PATIENT
  Sex: Female
  Weight: 84 kg

DRUGS (2)
  1. CISPLATIN [Suspect]
     Indication: NEOPLASM
     Dosage: SEE IMAGE
     Route: 042
     Dates: start: 20060103, end: 20060103
  2. NAVELBINE [Suspect]
     Dosage: SEE IMAGE
     Route: 040
     Dates: start: 20060103, end: 20060110

REACTIONS (3)
  - CATHETER SITE PAIN [None]
  - DEEP VEIN THROMBOSIS [None]
  - NECK PAIN [None]
